FAERS Safety Report 9309724 (Version 1)
Quarter: 2013Q2

REPORT INFORMATION
  Report Type: Spontaneous
  Country: US (occurrence: US)
  Receive Date: 20130525
  Receipt Date: 20130525
  Transmission Date: 20140414
  Serious: Yes (Other)
  Sender: FDA-Public Use
  Company Number: US-BRISTOL-MYERS SQUIBB COMPANY-18735746

PATIENT
  Age: 56 Year
  Sex: Female
  Weight: 87.08 kg

DRUGS (5)
  1. BYETTA [Suspect]
     Indication: TYPE 2 DIABETES MELLITUS
     Dosage: ALSO RECEIVED 10MCG
     Route: 058
     Dates: end: 201303
  2. BYDUREON [Suspect]
     Indication: TYPE 2 DIABETES MELLITUS
     Dosage: LONG ACTING RELEASE
     Route: 058
     Dates: start: 20130311
  3. LISINOPRIL [Concomitant]
     Route: 048
  4. EXENATIDE 5MCG PEN, DISPOSABLE DEVICE [Concomitant]
  5. EXENATIDE 10MCG PEN, DISPOSABLE DEVICE [Concomitant]

REACTIONS (6)
  - Uterine cancer [Unknown]
  - Migraine [Recovered/Resolved]
  - Blood glucose increased [Not Recovered/Not Resolved]
  - Blood glucose decreased [Recovered/Resolved]
  - Diarrhoea [Recovered/Resolved]
  - Inappropriate schedule of drug administration [Unknown]
